FAERS Safety Report 9278870 (Version 1)
Quarter: 2013Q2

REPORT INFORMATION
  Report Type: Spontaneous
  Country: IN (occurrence: IN)
  Receive Date: 20130508
  Receipt Date: 20130508
  Transmission Date: 20140414
  Serious: Yes (Other)
  Sender: FDA-Public Use
  Company Number: IN-TEVA-374270USA

PATIENT
  Age: 12 Year
  Sex: Male

DRUGS (4)
  1. ZINC ACETATE 25 MG + 50 MG CAPSULES [Suspect]
     Indication: HEPATO-LENTICULAR DEGENERATION
  2. D-PENICILLAMINE [Concomitant]
  3. PYRIDOXINE [Concomitant]
  4. PACITANE [Concomitant]

REACTIONS (1)
  - Abnormal behaviour [Unknown]
